FAERS Safety Report 4985743-3 (Version None)
Quarter: 2006Q2

REPORT INFORMATION
  Report Type: 
  Country: None (occurrence: None)
  Receive Date: 20060421
  Receipt Date: 20060411
  Transmission Date: 20061013
  Serious: Yes (Hospitalization)
  Sender: FDA-Public Use
  Company Number: 1199010971

PATIENT
  Age: 71 Year
  Sex: Male
  Weight: 81.6475 kg

DRUGS (4)
  1. CIPROFLOXACIN HCL [Suspect]
     Indication: DISEASE RECURRENCE
     Dosage: 1500 MG, TOTAL DAILY; ORAL
     Route: 048
     Dates: start: 19900815, end: 19900824
  2. CIPROFLOXACIN HCL [Suspect]
     Indication: PROSTATITIS
     Dosage: 1500 MG, TOTAL DAILY; ORAL
     Route: 048
     Dates: start: 19900815, end: 19900824
  3. ENTROPHEN [Concomitant]
  4. MOTILIUM [Concomitant]

REACTIONS (3)
  - ARTHRALGIA [None]
  - GOUT [None]
  - PYODERMA GANGRENOSUM [None]
